FAERS Safety Report 13571428 (Version 1)
Quarter: 2017Q2

REPORT INFORMATION
  Report Type: Spontaneous
  Country: US (occurrence: US)
  Receive Date: 20170522
  Receipt Date: 20170522
  Transmission Date: 20170830
  Serious: Yes (Other)
  Sender: FDA-Public Use
  Company Number: None

PATIENT
  Age: 73 Year
  Sex: Male
  Weight: 92.53 kg

DRUGS (2)
  1. SAXAGLIPTIN [Suspect]
     Active Substance: SAXAGLIPTIN
     Indication: CARDIAC FAILURE CONGESTIVE
     Route: 048
     Dates: start: 20160302, end: 20170405
  2. SAXAGLIPTIN [Suspect]
     Active Substance: SAXAGLIPTIN
     Indication: DIABETES MELLITUS
     Route: 048
     Dates: start: 20160302, end: 20170405

REACTIONS (2)
  - Palpitations [None]
  - Cardiac failure congestive [None]

NARRATIVE: CASE EVENT DATE: 20170405
